FAERS Safety Report 4335739-X (Version None)
Quarter: 2004Q2

REPORT INFORMATION
  Report Type: 
  Country: None (occurrence: None)
  Receive Date: 20040406
  Receipt Date: 20040331
  Transmission Date: 20050107
  Serious: Yes (Death, Life-Threatening)
  Sender: FDA-Public Use
  Company Number: 200410174BYL

PATIENT
  Age: 67 Year
  Sex: Male
  Weight: 65 kg

DRUGS (10)
  1. CIPROFLOXACIN [Suspect]
     Indication: PERITONITIS
     Dosage: SEE IMAGE
     Route: 041
     Dates: start: 20021014
  2. CIPROFLOXACIN [Suspect]
     Indication: PERITONITIS
     Dosage: SEE IMAGE
     Route: 041
     Dates: start: 20021015
  3. PENTCILLIN [Concomitant]
  4. SULPERAZON [Concomitant]
  5. MINOMYCIN [Concomitant]
  6. FLORID-F [Concomitant]
  7. DIFLUCAN [Concomitant]
  8. IMMUNE GLOBULIN INTRAVENOUS (HUMAN) [Concomitant]
  9. FOY [Concomitant]
  10. NEUTROGIN [Concomitant]

REACTIONS (3)
  - BLOOD BILIRUBIN INCREASED [None]
  - HEPATIC FUNCTION ABNORMAL [None]
  - RENAL IMPAIRMENT [None]
